FAERS Safety Report 9371607 (Version 1)
Quarter: 2013Q2

REPORT INFORMATION
  Report Type: Report from Study
  Country: AR (occurrence: AR)
  Receive Date: 20130627
  Receipt Date: 20130627
  Transmission Date: 20140414
  Serious: Yes (Other)
  Sender: FDA-Public Use
  Company Number: PHHY2013AR065858

PATIENT
  Sex: Female

DRUGS (2)
  1. TRILEPTAL [Suspect]
     Indication: EPILEPSY
     Dosage: 900 MG, DAILY (3 TABLET OF 300 MG DAILY)
     Route: 048
     Dates: start: 2007, end: 20120614
  2. TRILEPTAL [Suspect]
     Dosage: 900 MG, DAILY
     Dates: start: 201305

REACTIONS (2)
  - Petit mal epilepsy [Recovered/Resolved]
  - Exposure during pregnancy [Unknown]
